FAERS Safety Report 10064178 (Version 1)
Quarter: 2014Q1

REPORT INFORMATION
  Report Type: Spontaneous
  Country: US (occurrence: None)
  Receive Date: 20140122
  Receipt Date: 20140122
  Transmission Date: 20141002
  Serious: Yes (Hospitalization)
  Sender: FDA-Public Use
  Company Number: 20140003

PATIENT
  Age: 88 Year
  Sex: Male

DRUGS (15)
  1. VENOFER [Suspect]
     Indication: IRON DEFICIENCY ANAEMIA
     Dosage: NS OVER 45
     Route: 042
     Dates: start: 20131227, end: 20131227
  2. VENOFER [Suspect]
     Indication: RENAL FAILURE CHRONIC
     Dosage: NS OVER 45
     Route: 042
     Dates: start: 20131227, end: 20131227
  3. ASPIRIN [Concomitant]
  4. CARDURA (DOXAZOSIN MESYLATE) [Concomitant]
  5. LIPITOR (ATORVASTATIN CALCIUM) [Concomitant]
  6. CALCITRIOL [Concomitant]
  7. LEVOTHYROXINE [Concomitant]
  8. METOPROLOL [Concomitant]
  9. UNSPECIFIED MEDICATIONS [Concomitant]
  10. CILOSTAZOL [Concomitant]
  11. LISINOPRIL [Concomitant]
  12. ALLOPURINOL [Concomitant]
  13. FISH OIL [Concomitant]
  14. B-COMPLEX [Concomitant]
  15. FUROSEMIDE [Concomitant]

REACTIONS (2)
  - Syncope [None]
  - Cardiac arrest [None]
